FAERS Safety Report 18963681 (Version 1)
Quarter: 2021Q1

REPORT INFORMATION
  Report Type: Spontaneous
  Country: US (occurrence: US)
  Receive Date: 20210303
  Receipt Date: 20210303
  Transmission Date: 20210420
  Serious: Yes (Other)
  Sender: FDA-Public Use
  Company Number: US-AMGEN-USASP2021029594

PATIENT
  Sex: Male

DRUGS (2)
  1. VECTIBIX [Suspect]
     Active Substance: PANITUMUMAB
     Indication: COLON CANCER STAGE IV
     Dosage: 530 MILLIGRAM
     Route: 065
     Dates: start: 20201214, end: 20210111
  2. VECTIBIX [Suspect]
     Active Substance: PANITUMUMAB
     Dosage: 530 MILLIGRAM
     Route: 065
     Dates: start: 20210217

REACTIONS (2)
  - Neutropenia [Unknown]
  - Thrombocytopenia [Unknown]

NARRATIVE: CASE EVENT DATE: 202101
